FAERS Safety Report 5252856-0 (Version None)
Quarter: 2007Q1

REPORT INFORMATION
  Report Type: 
  Country: None (occurrence: None)
  Receive Date: 20070227
  Receipt Date: 20070214
  Transmission Date: 20070707
  Serious: Yes (Other)
  Sender: FDA-Public Use
  Company Number: GXKR2007CA00673

PATIENT
  Age: 65 Year
  Sex: Female

DRUGS (5)
  1. VITAMIN B-12 [Suspect]
     Indication: VITAMIN B12 DECREASED
     Dosage: 1000 MCG PER MONTH, INTRAMUSCULAR
     Route: 030
     Dates: start: 20060613
  2. LAMOTRIGINE [Concomitant]
  3. ESTROGENS (NO INGREDIENTS/SUBSTANCES) [Concomitant]
  4. THYROID THERAPY (NO INGREDIENTS/SUBSTANCES) [Concomitant]
  5. BACLOFEN [Concomitant]

REACTIONS (1)
  - EPILEPSY [None]
